FAERS Safety Report 8963032 (Version 1)
Quarter: 2012Q4

REPORT INFORMATION
  Report Type: 
  Country: CH (occurrence: CH)
  Receive Date: 20121213
  Receipt Date: 20121213
  Transmission Date: 20130627
  Serious: Yes (Disabling)
  Sender: FDA-Public Use
  Company Number: CH-PFIZER INC-2012308632

PATIENT
  Age: 81 Year
  Sex: Male
  Weight: 83 kg

DRUGS (15)
  1. CELEBREX [Suspect]
     Indication: ACUTE PAIN
     Dosage: 200 mg daily
     Route: 048
     Dates: start: 20120831, end: 20120905
  2. KARDEGIC [Concomitant]
     Dosage: 100 mg, 1x/day
     Route: 048
  3. SINTROM [Concomitant]
     Dosage: when needed for a long term treatment
     Route: 048
     Dates: end: 201208
  4. CORDARONE [Concomitant]
     Indication: ATRIAL FIBRILLATION
     Dosage: 100 mg, 1x/day
     Route: 048
  5. CORDARONE [Concomitant]
     Indication: ATRIAL FLUTTER
  6. FRAXIPARINE FORTE [Concomitant]
     Indication: PROPHYLAXIS
     Dosage: 0.6 ml, 1x/day
     Route: 058
     Dates: start: 20120901
  7. VOLTAREN [Concomitant]
     Indication: ACUTE PAIN
     Dosage: 150 mg, single
     Route: 048
     Dates: start: 20120831, end: 20120831
  8. ZINACEF [Concomitant]
     Indication: PROPHYLAXIS
     Dosage: 2250 mg daily as needed
     Route: 041
     Dates: start: 20120831, end: 20120831
  9. ONDANSETRON [Concomitant]
     Dosage: 12 mg daily
     Route: 041
     Dates: start: 20120831, end: 20120901
  10. MORPHINE [Concomitant]
     Dosage: 5 mg daily
     Route: 058
     Dates: start: 20120901, end: 20120904
  11. NEXIUM MUPS [Concomitant]
     Dosage: 40mg
     Route: 048
     Dates: start: 20120901
  12. CO-DIOVAN [Concomitant]
     Dosage: 160 mg, 1x/day
     Route: 048
  13. ALLOPUR [Concomitant]
     Dosage: 300 mg, 1x/day
     Route: 048
  14. LYRICA [Concomitant]
     Dosage: 200 mg, 1x/day
     Route: 048
  15. SORTIS [Concomitant]
     Dosage: 10 mg, 3x/week
     Route: 048

REACTIONS (2)
  - Optic ischaemic neuropathy [Recovering/Resolving]
  - Visual impairment [Recovering/Resolving]
